FAERS Safety Report 8259124-3 (Version None)
Quarter: 2012Q2

REPORT INFORMATION
  Report Type: 
  Country: None (occurrence: None)
  Receive Date: 20120404
  Receipt Date: 20120330
  Transmission Date: 20120825
  Serious: Yes (Other)
  Sender: FDA-Public Use
  Company Number: US-JNJFOC-20120400492

PATIENT
  Sex: Male

DRUGS (2)
  1. SUDAFED 12 HOUR [Suspect]
     Indication: STRESS
     Dosage: ABOUT FOUR CAPLETS EACH TIME, FOR ABOUT 10 TO 15 YEARS
     Route: 048
  2. SUDAFED 12 HOUR [Suspect]
     Indication: SOMNOLENCE
     Dosage: ABOUT FOUR CAPLETS EACH TIME, FOR ABOUT 10 TO 15 YEARS
     Route: 048

REACTIONS (2)
  - OFF LABEL USE [None]
  - SUICIDAL IDEATION [None]
